FAERS Safety Report 9284157 (Version 1)
Quarter: 2013Q2

REPORT INFORMATION
  Report Type: Spontaneous
  Country: IT (occurrence: IT)
  Receive Date: 20130510
  Receipt Date: 20130510
  Transmission Date: 20140414
  Serious: Yes (Hospitalization)
  Sender: FDA-Public Use
  Company Number: IT-ASTRAZENECA-2013SE31616

PATIENT
  Age: 15881 Day
  Sex: Female

DRUGS (3)
  1. SEROQUEL [Suspect]
     Indication: DRUG ABUSE
     Route: 048
     Dates: start: 20130331, end: 20130331
  2. LAMOTRIGINE [Suspect]
     Indication: DRUG ABUSE
     Route: 048
     Dates: start: 20130331, end: 20130331
  3. ZYPREXA [Concomitant]

REACTIONS (6)
  - Overdose [Unknown]
  - Drug abuse [Unknown]
  - Faecal incontinence [Recovered/Resolved]
  - Sopor [Recovered/Resolved]
  - Psychomotor hyperactivity [Recovered/Resolved]
  - Vomiting [Recovered/Resolved]
